FAERS Safety Report 19928169 (Version 5)
Quarter: 2021Q4

REPORT INFORMATION
  Report Type: Report from Study
  Country: US (occurrence: US)
  Receive Date: 20211007
  Receipt Date: 20211213
  Transmission Date: 20220303
  Serious: No
  Sender: FDA-Public Use
  Company Number: US-NOVARTISTESTPH-NVSC2021US229923

PATIENT
  Sex: Female
  Weight: 55 kg

DRUGS (11)
  1. MAYZENT [Suspect]
     Active Substance: SIPONIMOD
     Indication: Multiple sclerosis
     Dosage: 2 MG, QD
     Route: 048
  2. MAYZENT [Suspect]
     Active Substance: SIPONIMOD
     Dosage: UNK
     Route: 065
  3. MAYZENT [Suspect]
     Active Substance: SIPONIMOD
     Dosage: 2 MG
     Route: 048
     Dates: start: 20210913
  4. AMPYRA [Suspect]
     Active Substance: DALFAMPRIDINE
     Indication: Multiple sclerosis
     Dosage: 10 MILLIGRAM, BID
     Route: 048
  5. OCRELIZUMAB [Suspect]
     Active Substance: OCRELIZUMAB
     Indication: Product used for unknown indication
     Dosage: UNK
     Route: 065
  6. VESICARE [Concomitant]
     Active Substance: SOLIFENACIN SUCCINATE
     Indication: Product used for unknown indication
     Dosage: UNK
     Route: 065
  7. MYRBETRIQ [Concomitant]
     Active Substance: MIRABEGRON
     Indication: Product used for unknown indication
     Dosage: UNK
     Route: 065
  8. VITAMINS [Concomitant]
     Active Substance: VITAMINS
     Indication: Product used for unknown indication
     Route: 065
  9. BACLOFEN [Concomitant]
     Active Substance: BACLOFEN
     Indication: Product used for unknown indication
     Route: 065
  10. VITAMIN D [Concomitant]
     Active Substance: VITAMIN D NOS
     Indication: Product used for unknown indication
     Route: 065
  11. CALCIUM [Suspect]
     Active Substance: CALCIUM
     Indication: Product used for unknown indication
     Route: 065

REACTIONS (12)
  - Peroneal nerve palsy [Unknown]
  - Full blood count abnormal [Unknown]
  - Antibody test abnormal [Unknown]
  - Weight decreased [Unknown]
  - Decreased appetite [Unknown]
  - Feeling abnormal [Unknown]
  - General physical health deterioration [Unknown]
  - Balance disorder [Unknown]
  - Asthenia [Unknown]
  - Headache [Unknown]
  - Extra dose administered [Unknown]
  - Visual impairment [Unknown]
